FAERS Safety Report 5579063-6 (Version None)
Quarter: 2007Q4

REPORT INFORMATION
  Report Type: 
  Country: None (occurrence: None)
  Receive Date: 20071228
  Receipt Date: 20071228
  Transmission Date: 20080405
  Serious: Yes (Other)
  Sender: FDA-Public Use
  Company Number: None

PATIENT
  Age: 50 Year
  Sex: Female
  Weight: 60.3284 kg

DRUGS (1)
  1. CHANTIX [Suspect]
     Indication: SMOKING CESSATION THERAPY
     Dosage: AS DIRECTED
     Dates: start: 20071001, end: 20071021

REACTIONS (5)
  - CRYING [None]
  - DEPRESSION [None]
  - IRRITABILITY [None]
  - STRESS [None]
  - SUICIDAL IDEATION [None]
